FAERS Safety Report 22951472 (Version 3)
Quarter: 2024Q1

REPORT INFORMATION
  Report Type: Report from Study
  Country: US (occurrence: US)
  Receive Date: 20230918
  Receipt Date: 20240208
  Transmission Date: 20240410
  Serious: Yes (Other)
  Sender: FDA-Public Use
  Company Number: US-ABBVIE-5407782

PATIENT
  Age: 53 Year
  Sex: Female

DRUGS (2)
  1. HUMIRA [Suspect]
     Active Substance: ADALIMUMAB
     Indication: Rheumatoid arthritis
     Route: 058
     Dates: start: 20220814
  2. HUMIRA [Suspect]
     Active Substance: ADALIMUMAB
     Route: 058

REACTIONS (10)
  - Intestinal obstruction [Not Recovered/Not Resolved]
  - Influenza [Recovered/Resolved]
  - Colitis [Not Recovered/Not Resolved]
  - Precancerous condition [Unknown]
  - Myalgia [Unknown]
  - Arthralgia [Not Recovered/Not Resolved]
  - Fall [Unknown]
  - Chronic cutaneous lupus erythematosus [Not Recovered/Not Resolved]
  - Enteritis [Not Recovered/Not Resolved]
  - Intestinal polyp [Unknown]

NARRATIVE: CASE EVENT DATE: 20221201
